FAERS Safety Report 6217375-3 (Version None)
Quarter: 2009Q2

REPORT INFORMATION
  Report Type: 
  Country: None (occurrence: None)
  Receive Date: 20090608
  Receipt Date: 20080821
  Transmission Date: 20091009
  Serious: No
  Sender: FDA-Public Use
  Company Number: A0743970A

PATIENT
  Sex: Male

DRUGS (3)
  1. WELLBUTRIN XL [Suspect]
     Indication: DRUG USE FOR UNKNOWN INDICATION
     Dosage: 300MG PER DAY
     Route: 048
  2. LEXAPRO [Suspect]
     Indication: DRUG USE FOR UNKNOWN INDICATION
     Route: 065
  3. C-PAP [Concomitant]

REACTIONS (2)
  - SEXUAL DYSFUNCTION [None]
  - TACHYPHYLAXIS [None]
